FAERS Safety Report 19221318 (Version 2)
Quarter: 2021Q2

REPORT INFORMATION
  Report Type: Spontaneous
  Country: IT (occurrence: IT)
  Receive Date: 20210505
  Receipt Date: 20210511
  Transmission Date: 20210717
  Serious: Yes (Hospitalization)
  Sender: FDA-Public Use
  Company Number: IT-BAXTER-2021BAX009478

PATIENT
  Age: 69 Year
  Sex: Male

DRUGS (6)
  1. CERNEVIT [Suspect]
     Active Substance: VITAMINS
     Dosage: SPEED INCREASED TO 80ML / H
     Route: 042
     Dates: start: 20210422, end: 20210423
  2. GLUCOSIO 5% BAXTER [Suspect]
     Active Substance: DEXTROSE
     Indication: PARENTERAL NUTRITION
     Dosage: 1 VIAL OF CERNEVIT RECONSTITUTED WITH 5ML OF GLUCOSE AT 62ML / H.
     Route: 042
     Dates: start: 20210421
  3. CERNEVIT [Suspect]
     Active Substance: VITAMINS
     Indication: PARENTERAL NUTRITION
     Dosage: 1 VIAL OF CERNEVIT RECONSTITUTED WITH 5ML OF GLUCOSE AT 62ML / H.
     Route: 042
     Dates: start: 20210421
  4. OLIMEL [Suspect]
     Active Substance: AMINO ACIDS\DEXTROSE\SOYBEAN OIL
     Indication: PARENTERAL NUTRITION
     Dosage: AT 62 ML/HR
     Route: 042
     Dates: start: 20210421
  5. GLUCOSIO 5% BAXTER [Suspect]
     Active Substance: DEXTROSE
     Dosage: SPEED INCREASED TO 80ML / H.
     Route: 042
     Dates: start: 20210422, end: 20210423
  6. OLIMEL [Suspect]
     Active Substance: AMINO ACIDS\DEXTROSE\SOYBEAN OIL
     Dosage: SPEED INCREASED TO 80ML / H
     Route: 042
     Dates: start: 20210422, end: 20210423

REACTIONS (4)
  - Pneumonia [Unknown]
  - Product dispensing error [Unknown]
  - Wrong product administered [Unknown]
  - Cough [Unknown]

NARRATIVE: CASE EVENT DATE: 20210419
